FAERS Safety Report 25423714 (Version 1)
Quarter: 2025Q2

REPORT INFORMATION
  Report Type: Report from Study
  Country: AT (occurrence: AT)
  Receive Date: 20250611
  Receipt Date: 20250611
  Transmission Date: 20250716
  Serious: Yes (Life-Threatening, Hospitalization, Other)
  Sender: PFIZER
  Company Number: AT-CELLTRION INC.-2025AT017214

PATIENT
  Age: 58 Year
  Sex: Female
  Weight: 52.9 kg

DRUGS (34)
  1. RITUXIMAB [Suspect]
     Active Substance: RITUXIMAB
     Indication: Diffuse large B-cell lymphoma
     Dosage: 375 MG/M2, EVERY 3 WEEKS
     Route: 042
     Dates: start: 20220603
  2. RITUXIMAB [Suspect]
     Active Substance: RITUXIMAB
     Dosage: 375 MG/M2, EVERY 3 WEEKS
     Route: 042
     Dates: start: 20220809
  3. DOXORUBICIN HYDROCHLORIDE [Suspect]
     Active Substance: DOXORUBICIN HYDROCHLORIDE
     Indication: Diffuse large B-cell lymphoma
     Dosage: 50 MG/M2, EVERY 3 WEEKS
     Route: 042
     Dates: start: 20220603
  4. DOXORUBICIN HYDROCHLORIDE [Suspect]
     Active Substance: DOXORUBICIN HYDROCHLORIDE
     Dosage: 50 MG/M2, EVERY 3 WEEKS
     Route: 042
     Dates: start: 20220809
  5. VINCRISTINE [Suspect]
     Active Substance: VINCRISTINE
     Indication: Diffuse large B-cell lymphoma
     Dosage: 1.3 MG/M2, EVERY 3 WEEKS
     Route: 042
     Dates: start: 20220603
  6. VINCRISTINE [Suspect]
     Active Substance: VINCRISTINE
     Dosage: 1.3 MG/M2, EVERY 3 WEEKS
     Route: 042
     Dates: start: 20220809
  7. TAFASITAMAB [Suspect]
     Active Substance: TAFASITAMAB
     Indication: Diffuse large B-cell lymphoma
     Dosage: 12 MG/KG, WEEKLY
     Route: 042
     Dates: start: 20220603, end: 20220817
  8. TAFASITAMAB [Suspect]
     Active Substance: TAFASITAMAB
     Dosage: 12 MG/KG, WEEKLY
     Route: 042
     Dates: start: 20220809
  9. TAFASITAMAB [Suspect]
     Active Substance: TAFASITAMAB
     Dosage: 12 MG/KG, WEEKLY
     Route: 042
     Dates: start: 20220824
  10. LENALIDOMIDE [Suspect]
     Active Substance: LENALIDOMIDE
     Indication: Diffuse large B-cell lymphoma
     Route: 048
     Dates: start: 20220603, end: 20220817
  11. LENALIDOMIDE [Suspect]
     Active Substance: LENALIDOMIDE
     Route: 048
     Dates: start: 20220831
  12. CYCLOPHOSPHAMIDE [Suspect]
     Active Substance: CYCLOPHOSPHAMIDE
     Indication: Diffuse large B-cell lymphoma
     Dosage: 750 MG/M2, EVERY 3 WEEKS
     Route: 042
     Dates: start: 20220603
  13. CYCLOPHOSPHAMIDE [Suspect]
     Active Substance: CYCLOPHOSPHAMIDE
     Dosage: 750 MG/M2, EVERY 3 WEEKS
     Route: 042
     Dates: start: 20220809
  14. PREDNISOLONE [Suspect]
     Active Substance: PREDNISOLONE
     Indication: Diffuse large B-cell lymphoma
     Dosage: 100 MG, EVERY 3 WEEKS
     Route: 042
     Dates: start: 20220603
  15. PREDNISOLONE [Suspect]
     Active Substance: PREDNISOLONE
     Dosage: 100 MG, EVERY 3 WEEKS
     Route: 042
     Dates: start: 20220809
  16. PANTOPRAZOLE SODIUM [Concomitant]
     Active Substance: PANTOPRAZOLE SODIUM
     Dates: start: 20220530
  17. ASPIRIN [Concomitant]
     Active Substance: ASPIRIN
     Dates: start: 20220601
  18. SULFAMETROLE\TRIMETHOPRIM [Concomitant]
     Active Substance: SULFAMETROLE\TRIMETHOPRIM
     Dates: start: 20220601
  19. VALACYCLOVIR HYDROCHLORIDE [Concomitant]
     Active Substance: VALACYCLOVIR HYDROCHLORIDE
     Dates: start: 20220531
  20. PASSEDAN [Concomitant]
     Dates: start: 20220530
  21. METOCLOPRAMIDE HYDROCHLORIDE [Concomitant]
     Active Substance: METOCLOPRAMIDE HYDROCHLORIDE
     Dates: start: 20220607
  22. ACETAMINOPHEN [Concomitant]
     Active Substance: ACETAMINOPHEN
     Dates: start: 20220602
  23. ONDANSETRON HYDROCHLORIDE [Concomitant]
     Active Substance: ONDANSETRON HYDROCHLORIDE
     Dates: start: 20220607
  24. LAXOGOL [Concomitant]
     Dates: start: 20220607
  25. IMODIUM [Concomitant]
     Active Substance: LOPERAMIDE HYDROCHLORIDE
     Dates: start: 20220530
  26. DEXIBUPROFEN [Concomitant]
     Active Substance: DEXIBUPROFEN
     Dates: start: 20220530
  27. ZYPREXA [Concomitant]
     Active Substance: OLANZAPINE
     Dates: start: 20220603
  28. BISOPROLOL FUMARATE [Concomitant]
     Active Substance: BISOPROLOL FUMARATE
     Dates: start: 20220606
  29. GLANDOMED [Concomitant]
     Dates: start: 20220610
  30. ERYTHROPOIETIN [Concomitant]
     Active Substance: ERYTHROPOIETIN
     Dates: start: 20220707
  31. TRAZODONE HYDROCHLORIDE [Concomitant]
     Active Substance: TRAZODONE HYDROCHLORIDE
     Dates: start: 20220817
  32. MAGNESIUM VERLA [MAGNESIUM] [Concomitant]
     Dates: start: 20220726
  33. AKYNZEO [FOSNETUPITANT CHLORIDE HYDROCHLORIDE;PALONOSETRON HYDROCHLORI [Concomitant]
     Dates: start: 20220601
  34. OVESTINON [ESTRIOL] [Concomitant]
     Dates: start: 20220530

REACTIONS (2)
  - Neutropenia [Recovered/Resolved]
  - Infection [Recovered/Resolved]

NARRATIVE: CASE EVENT DATE: 20220817
